FAERS Safety Report 16273633 (Version 1)
Quarter: 2019Q2

REPORT INFORMATION
  Report Type: Spontaneous
  Country: CN (occurrence: CN)
  Receive Date: 20190506
  Receipt Date: 20190506
  Transmission Date: 20190711
  Serious: Yes (Other)
  Sender: FDA-Public Use
  Company Number: CN-ROCHE-2302308

PATIENT
  Age: 63 Year
  Sex: Male

DRUGS (9)
  1. CYCLOPHOSPHAMIDE. [Concomitant]
     Active Substance: CYCLOPHOSPHAMIDE
     Route: 065
     Dates: start: 2017
  2. VINCRISTINE [Concomitant]
     Active Substance: VINCRISTINE
     Route: 065
     Dates: start: 2017
  3. RITUXIMAB. [Suspect]
     Active Substance: RITUXIMAB
     Indication: DIFFUSE LARGE B-CELL LYMPHOMA
     Route: 065
     Dates: start: 2017
  4. L-ASPARAGINASE [Concomitant]
     Active Substance: ASPARAGINASE
     Route: 065
     Dates: start: 2018
  5. RITUXIMAB. [Suspect]
     Active Substance: RITUXIMAB
     Indication: DIFFUSE LARGE B-CELL LYMPHOMA STAGE III
  6. PREDNISONE. [Concomitant]
     Active Substance: PREDNISONE
     Route: 065
     Dates: start: 2017
  7. DAUNORUBICIN [Concomitant]
     Active Substance: DAUNORUBICIN
     Route: 065
     Dates: start: 2018
  8. ADRIAMYCIN [Concomitant]
     Active Substance: DOXORUBICIN HYDROCHLORIDE
     Route: 065
     Dates: start: 2018
  9. DOXORUBICIN [Concomitant]
     Active Substance: DOXORUBICIN
     Route: 065
     Dates: start: 2017

REACTIONS (23)
  - Mass [Unknown]
  - Pyrexia [Recovered/Resolved]
  - Transaminases increased [Unknown]
  - Serum ferritin increased [Unknown]
  - Lung infection [Unknown]
  - Pancytopenia [Unknown]
  - Ill-defined disorder [Unknown]
  - Pharyngeal oedema [Unknown]
  - Lymphoma [Unknown]
  - Dyskinesia [Unknown]
  - Disease progression [Unknown]
  - Leukaemia [Unknown]
  - Spinal pain [Not Recovered/Not Resolved]
  - Blood glucose increased [Unknown]
  - Tenderness [Unknown]
  - Neck mass [Unknown]
  - Haemoglobin decreased [Unknown]
  - Blood lactate dehydrogenase increased [Unknown]
  - Disease recurrence [Unknown]
  - Cough [Unknown]
  - Oropharyngeal pain [Unknown]
  - Condition aggravated [Unknown]
  - Platelet count decreased [Unknown]

NARRATIVE: CASE EVENT DATE: 201801
